FAERS Safety Report 5589429-6 (Version None)
Quarter: 2008Q1

REPORT INFORMATION
  Report Type: 
  Country: None (occurrence: None)
  Receive Date: 20080109
  Receipt Date: 20080109
  Transmission Date: 20080703
  Serious: Yes (Other)
  Sender: FDA-Public Use
  Company Number: None

PATIENT
  Sex: Male

DRUGS (1)
  1. ISENTRESS [Suspect]
     Indication: HIV INFECTION
     Dosage: 400 MG TWICE DAILY PO
     Route: 048
     Dates: start: 20071120

REACTIONS (6)
  - ARTHRALGIA [None]
  - BACK PAIN [None]
  - BLOOD CREATINE PHOSPHOKINASE INCREASED [None]
  - BONE PAIN [None]
  - CHEST PAIN [None]
  - PYREXIA [None]
